FAERS Safety Report 5362687-9 (Version None)
Quarter: 2007Q2

REPORT INFORMATION
  Report Type: 
  Country: None (occurrence: None)
  Receive Date: 20070530
  Receipt Date: 20070321
  Transmission Date: 20071010
  Serious: No
  Sender: FDA-Public Use
  Company Number: 2007PV032142

PATIENT
  Age: 72 Year
  Sex: Female
  Weight: 88.4514 kg

DRUGS (4)
  1. BYETTA [Suspect]
     Indication: DIABETES MELLITUS NON-INSULIN-DEPENDENT
     Dosage: 10 MCG;BID;SC
     Route: 058
     Dates: start: 20070221
  2. GLUCOVANCE [Concomitant]
  3. ASPIRIN [Concomitant]
  4. ZETIA [Concomitant]

REACTIONS (6)
  - BLOOD GLUCOSE DECREASED [None]
  - ERUCTATION [None]
  - HEADACHE [None]
  - HICCUPS [None]
  - NAUSEA [None]
  - RHINORRHOEA [None]
